FAERS Safety Report 9570934 (Version 1)
Quarter: 2013Q4

REPORT INFORMATION
  Report Type: Spontaneous
  Country: US (occurrence: US)
  Receive Date: 20131001
  Receipt Date: 20131001
  Transmission Date: 20140711
  Serious: Yes (Other)
  Sender: FDA-Public Use
  Company Number: US-ASTRAZENECA-2013SE71729

PATIENT
  Age: 14 Year
  Sex: Male
  Weight: 115.7 kg

DRUGS (6)
  1. SEROQUEL [Suspect]
     Indication: BIPOLAR I DISORDER
     Route: 048
     Dates: start: 201001
  2. SEROQUEL [Suspect]
     Indication: ABNORMAL BEHAVIOUR
     Route: 048
     Dates: start: 201001
  3. SEROQUEL [Suspect]
     Indication: AUTISM
     Route: 048
     Dates: start: 201001
  4. OXYCARBAZINE [Concomitant]
     Indication: ABNORMAL BEHAVIOUR
     Route: 048
     Dates: start: 20100114
  5. OXYCARBAZINE [Concomitant]
     Indication: CONVULSION
     Route: 048
     Dates: start: 20100114
  6. LITHIUM [Concomitant]
     Indication: ABNORMAL BEHAVIOUR
     Route: 048
     Dates: start: 201106

REACTIONS (3)
  - Convulsion [Unknown]
  - Gastroenteritis viral [Unknown]
  - Weight increased [Unknown]
